FAERS Safety Report 25374531 (Version 1)
Quarter: 2025Q2

REPORT INFORMATION
  Report Type: Spontaneous
  Country: AR (occurrence: AR)
  Receive Date: 20250529
  Receipt Date: 20250529
  Transmission Date: 20250717
  Serious: Yes (Other)
  Sender: NOVARTIS
  Company Number: AR-002147023-NVSC2025AR085374

PATIENT
  Age: 80 Year
  Sex: Male

DRUGS (1)
  1. COSENTYX [Suspect]
     Active Substance: SECUKINUMAB
     Indication: Product used for unknown indication
     Dosage: 150 MG, QMO
     Route: 065
     Dates: start: 2024

REACTIONS (3)
  - Blindness [Unknown]
  - Pain [Unknown]
  - Malaise [Unknown]
